FAERS Safety Report 15309150 (Version 1)
Quarter: 2018Q3

REPORT INFORMATION
  Report Type: Spontaneous
  Country: US (occurrence: US)
  Receive Date: 20180823
  Receipt Date: 20180823
  Transmission Date: 20181010
  Serious: Yes (Hospitalization)
  Sender: FDA-Public Use
  Company Number: PHHY2018US073722

PATIENT
  Age: 8 Year
  Sex: Male

DRUGS (3)
  1. PREDNISONE. [Suspect]
     Active Substance: PREDNISONE
     Dosage: 60 MG, QD
     Route: 065
  2. PREDNISONE. [Suspect]
     Active Substance: PREDNISONE
     Indication: NEPHROTIC SYNDROME
     Dosage: 60 MG, QD
     Route: 065
  3. PREDNISONE. [Suspect]
     Active Substance: PREDNISONE
     Dosage: 50 MG, QD
     Route: 065

REACTIONS (9)
  - Skin discolouration [Unknown]
  - Gait disturbance [Unknown]
  - Necrosis [Unknown]
  - Blister [Unknown]
  - Dry gangrene [Unknown]
  - Pain in extremity [Unknown]
  - Peripheral coldness [Unknown]
  - Arterial thrombosis [Unknown]
  - Tenderness [Unknown]
